FAERS Safety Report 10221775 (Version 1)
Quarter: 2014Q2

REPORT INFORMATION
  Report Type: Spontaneous
  Country: GB (occurrence: GB)
  Receive Date: 20140606
  Receipt Date: 20140606
  Transmission Date: 20141212
  Serious: No
  Sender: FDA-Public Use
  Company Number: GB-BIOMARINAP-GB-2013-100885

PATIENT
  Sex: Male

DRUGS (2)
  1. NAGLAZYME [Suspect]
     Indication: MUCOPOLYSACCHARIDOSIS VI
     Dosage: 15 MG, QW
     Route: 041
  2. NAGLAZYME [Suspect]
     Dosage: 20 MG, QW
     Route: 041

REACTIONS (2)
  - Lower respiratory tract infection [Not Recovered/Not Resolved]
  - Cough [Not Recovered/Not Resolved]
